FAERS Safety Report 11048638 (Version 5)
Quarter: 2016Q4

REPORT INFORMATION
  Report Type: Report from Study
  Country: CA (occurrence: CA)
  Receive Date: 20150420
  Receipt Date: 20161205
  Transmission Date: 20170206
  Serious: Yes (Other)
  Sender: FDA-Public Use
  Company Number: CA-GLAXOSMITHKLINE-A1044439A

PATIENT
  Age: 34 Year
  Sex: Female
  Weight: 56 kg

DRUGS (3)
  1. BELIMUMAB [Suspect]
     Active Substance: BELIMUMAB
     Dosage: UNK
  2. BELIMUMAB [Suspect]
     Active Substance: BELIMUMAB
     Indication: SYSTEMIC LUPUS ERYTHEMATOSUS
     Dosage: 560 MG, Z
     Route: 042
     Dates: start: 20120614
  3. INFLUENZA VACCINE UNSPECIFIED 2013-2014 SEASON [Suspect]
     Active Substance: INFLUENZA VIRUS VACCINE
     Indication: PROPHYLAXIS
     Route: 065
     Dates: start: 201311, end: 201311

REACTIONS (25)
  - Abasia [Recovered/Resolved]
  - Cough [Recovered/Resolved]
  - Ear pain [Unknown]
  - Cerumen impaction [Unknown]
  - Oropharyngeal pain [Unknown]
  - Therapeutic response unexpected [Unknown]
  - Mouth ulceration [Recovering/Resolving]
  - Malaise [Unknown]
  - Cough [Not Recovered/Not Resolved]
  - Nasopharyngitis [Recovered/Resolved]
  - Nausea [Unknown]
  - Photosensitivity reaction [Recovering/Resolving]
  - Infection [Recovered/Resolved]
  - Rash [Recovered/Resolved]
  - Insomnia [Unknown]
  - Abdominal discomfort [Recovered/Resolved]
  - Autonomic nervous system imbalance [Unknown]
  - Influenza [Unknown]
  - Pyrexia [Unknown]
  - Anxiety [Unknown]
  - Somnolence [Unknown]
  - Drug dose omission [Unknown]
  - Treatment noncompliance [Unknown]
  - Diarrhoea [Recovering/Resolving]
  - Bedridden [Recovered/Resolved]

NARRATIVE: CASE EVENT DATE: 201302
